FAERS Safety Report 4602645-2 (Version None)
Quarter: 2005Q1

REPORT INFORMATION
  Report Type: 
  Country: None (occurrence: None)
  Receive Date: 20050307
  Receipt Date: 20050228
  Transmission Date: 20050727
  Serious: Yes (Death, Other)
  Sender: FDA-Public Use
  Company Number: 2005026607

PATIENT
  Age: 44 Year
  Sex: Male

DRUGS (9)
  1. BEXTRA [Suspect]
     Indication: BACK PAIN
     Dosage: 20 MG (20 MG, 1 IN 1 D), ORAL
     Route: 048
     Dates: start: 20030418
  2. FENTANYL (FENTANYL) [Concomitant]
  3. OXYCODONE HYDROCHLORIDE (OXYCODONE HYDROCHLORIDE) [Concomitant]
  4. CARISOPRODOL [Concomitant]
  5. LIDOCAINE HYDROCHLORIDE [Concomitant]
  6. SERTRALINE HCL [Concomitant]
  7. CLONAZEPAM [Concomitant]
  8. QUETIAPINE FUMARATE (QUETIAPINE FUMARATE) [Concomitant]
  9. AXOTAL (OLD FORM) (BUTALBITAL, CAFFEINE, PARACETAMOL) [Concomitant]

REACTIONS (2)
  - FALL [None]
  - MYOCARDIAL INFARCTION [None]
